FAERS Safety Report 9081239 (Version 1)
Quarter: 2013Q1

REPORT INFORMATION
  Report Type: Report from Study
  Country: US (occurrence: US)
  Receive Date: 20130130
  Receipt Date: 20130130
  Transmission Date: 20140127
  Serious: No
  Sender: FDA-Public Use
  Company Number: US-ABBOTT-12P-163-0962277-00

PATIENT
  Age: 69 Year
  Sex: Male

DRUGS (7)
  1. HUMIRA 40 MG/0.8 ML PEN [Suspect]
     Indication: CROHN^S DISEASE
     Dates: start: 20120716, end: 20120716
  2. HUMIRA 40 MG/0.8 ML PEN [Suspect]
     Dates: start: 20120729
  3. METFORMIN [Concomitant]
     Indication: DIABETES MELLITUS
     Dosage: DAILY
  4. DIOVAN [Concomitant]
     Indication: HYPERTENSION
     Dosage: DAILY
  5. CRESTOR [Concomitant]
     Indication: BLOOD CHOLESTEROL INCREASED
     Dosage: DAILY
  6. NAPROXEN [Concomitant]
     Indication: RHEUMATOID ARTHRITIS
     Dosage: DAILY
  7. OVER THE COUNTER IRON PILL [Concomitant]
     Indication: MINERAL SUPPLEMENTATION
     Dosage: ONCE DAILY

REACTIONS (1)
  - Injection site pain [Recovered/Resolved]
